FAERS Safety Report 23865292 (Version 1)
Quarter: 2024Q2

REPORT INFORMATION
  Report Type: Report from Study
  Country: US (occurrence: US)
  Receive Date: 20240517
  Receipt Date: 20240517
  Transmission Date: 20240715
  Serious: Yes (Other)
  Sender: FDA-Public Use
  Company Number: US-JNJFOC-20230545331

PATIENT
  Age: 59 Year
  Sex: Male

DRUGS (1)
  1. TECLISTAMAB [Suspect]
     Active Substance: TECLISTAMAB
     Indication: Plasma cell myeloma
     Route: 058
     Dates: start: 20221201, end: 20230101

REACTIONS (3)
  - Immunoglobulins decreased [Not Recovered/Not Resolved]
  - Headache [Not Recovered/Not Resolved]
  - Adverse drug reaction [Unknown]
